FAERS Safety Report 8328257-5 (Version None)
Quarter: 2012Q2

REPORT INFORMATION
  Report Type: 
  Country: None (occurrence: None)
  Receive Date: 20120502
  Receipt Date: 20120425
  Transmission Date: 20120825
  Serious: Yes (Other)
  Sender: FDA-Public Use
  Company Number: JP-ASTELLAS-2012JP003663

PATIENT
  Sex: Male
  Weight: 78.8 kg

DRUGS (9)
  1. TACROLIMUS [Suspect]
     Dosage: 2.5 MG, UNKNOWN/D
     Route: 048
     Dates: start: 20110526, end: 20110629
  2. BASEN [Concomitant]
     Dosage: 0.6 MG, UNKNOWN/D
     Route: 048
  3. GLIMICRON [Concomitant]
     Dosage: 40 MG, UNKNOWN/D
     Route: 048
  4. PREDNISOLONE [Concomitant]
     Indication: MYASTHENIA GRAVIS
     Dosage: 1 MG, UNKNOWN/D
     Route: 048
     Dates: end: 20110122
  5. ONEALFA [Concomitant]
     Dosage: 0.5 UG, UNKNOWN/D
     Route: 048
  6. FAMOTIDINE [Concomitant]
     Dosage: 20 MG, UNKNOWN/D
     Route: 048
  7. TACROLIMUS [Suspect]
     Indication: MYASTHENIA GRAVIS
     Dosage: 3 MG, UNKNOWN/D
     Route: 048
     Dates: start: 20100820, end: 20110525
  8. BEZATOL [Concomitant]
     Dosage: 400 MG, UNKNOWN/D
     Route: 048
  9. TACROLIMUS [Suspect]
     Dosage: 2 MG, UNKNOWN/D
     Route: 048
     Dates: start: 20110630

REACTIONS (2)
  - GLYCOSYLATED HAEMOGLOBIN INCREASED [None]
  - RENAL IMPAIRMENT [None]
